FAERS Safety Report 22099141 (Version 2)
Quarter: 2023Q1

REPORT INFORMATION
  Report Type: Report from Study
  Country: CO (occurrence: CO)
  Receive Date: 20230315
  Receipt Date: 20230322
  Transmission Date: 20230417
  Serious: Yes (Hospitalization, Other)
  Sender: FDA-Public Use
  Company Number: CO-009507513-2204COL004197

PATIENT
  Age: 66 Year
  Sex: Male
  Weight: 52 kg

DRUGS (19)
  1. PEMBROLIZUMAB [Suspect]
     Active Substance: PEMBROLIZUMAB
     Indication: Lung neoplasm malignant
     Dosage: 200 MG/EVERY 3 WEEKS
     Route: 042
     Dates: start: 20210301, end: 20220315
  2. PEMBROLIZUMAB [Suspect]
     Active Substance: PEMBROLIZUMAB
     Dosage: 200 MG/EVERY 3 WEEKS
     Route: 042
     Dates: start: 20220528, end: 20220528
  3. PEMBROLIZUMAB [Suspect]
     Active Substance: PEMBROLIZUMAB
     Dosage: 200 MG/EVERY 3 WEEKS
     Route: 042
     Dates: start: 20220701, end: 20220701
  4. PEMBROLIZUMAB [Suspect]
     Active Substance: PEMBROLIZUMAB
     Dosage: 200 MG/EVERY 3 WEEKS
     Route: 042
     Dates: start: 20220728, end: 20220728
  5. PEMBROLIZUMAB [Suspect]
     Active Substance: PEMBROLIZUMAB
     Dosage: 200 MG/EVERY 3 WEEKS
     Route: 042
     Dates: start: 20220825, end: 20220825
  6. PEMBROLIZUMAB [Suspect]
     Active Substance: PEMBROLIZUMAB
     Dosage: 200 MG/EVERY 3 WEEKS
     Route: 042
     Dates: start: 20220928, end: 20220928
  7. PEMBROLIZUMAB [Suspect]
     Active Substance: PEMBROLIZUMAB
     Dosage: UNK
     Dates: start: 20221123, end: 20221123
  8. PEMBROLIZUMAB [Suspect]
     Active Substance: PEMBROLIZUMAB
     Dosage: 200 MILLIGRAM, Q3W
     Route: 042
     Dates: start: 20221221, end: 20221221
  9. PEMBROLIZUMAB [Suspect]
     Active Substance: PEMBROLIZUMAB
     Dosage: 200 MILLIGRAM, Q3W
     Route: 042
     Dates: start: 20230112
  10. PEMBROLIZUMAB [Suspect]
     Active Substance: PEMBROLIZUMAB
     Dosage: 200 MILLIGRAM, Q3W
     Route: 042
     Dates: start: 20230222
  11. PEMETREXED [Concomitant]
     Active Substance: PEMETREXED
     Indication: Lung neoplasm malignant
     Dosage: 845 MG/M2/EVERY 3 WEEKS
     Route: 042
     Dates: start: 20210301, end: 20220315
  12. PEMETREXED [Concomitant]
     Active Substance: PEMETREXED
     Dosage: 345 MG/M2/EVERY 3 WEEKS
     Route: 042
     Dates: start: 20210301, end: 20220315
  13. ONDANSETRON [Concomitant]
     Active Substance: ONDANSETRON
     Indication: Premedication
     Dosage: 8 MG/EVERY 3 WEEKS
     Route: 048
     Dates: start: 20210301, end: 20220315
  14. ONDANSETRON [Concomitant]
     Active Substance: ONDANSETRON
     Indication: Antiemetic supportive care
  15. DEXAMETHASONE [Concomitant]
     Active Substance: DEXAMETHASONE
     Indication: Premedication
     Dosage: 8 MG/EVERY 3 WEEKS
     Route: 042
     Dates: start: 20210301, end: 20220315
  16. DEXAMETHASONE [Concomitant]
     Active Substance: DEXAMETHASONE
     Indication: Antiallergic therapy
  17. DEXAMETHASONE [Concomitant]
     Active Substance: DEXAMETHASONE
     Indication: Antiinflammatory therapy
  18. PEGFILGRASTIM [Concomitant]
     Active Substance: PEGFILGRASTIM
     Indication: Premedication
     Dosage: 8 INTERNATIONAL UNIT
     Route: 058
     Dates: start: 20210301, end: 20220315
  19. PEGFILGRASTIM [Concomitant]
     Active Substance: PEGFILGRASTIM
     Indication: Prophylaxis

REACTIONS (32)
  - Hypoxia [Not Recovered/Not Resolved]
  - Melaena [Recovering/Resolving]
  - Gastric ulcer [Recovered/Resolved]
  - Malignant neoplasm progression [Unknown]
  - Diabetes mellitus [Not Recovered/Not Resolved]
  - Skin lesion [Not Recovered/Not Resolved]
  - Headache [Not Recovered/Not Resolved]
  - Diarrhoea [Not Recovered/Not Resolved]
  - Dyspnoea [Not Recovered/Not Resolved]
  - Discouragement [Recovering/Resolving]
  - Fall [Recovering/Resolving]
  - Chest pain [Unknown]
  - Influenza [Recovering/Resolving]
  - Renal disorder [Unknown]
  - Influenza [Not Recovered/Not Resolved]
  - Weight decreased [Recovering/Resolving]
  - Discomfort [Recovering/Resolving]
  - Decreased appetite [Recovering/Resolving]
  - Fatigue [Not Recovered/Not Resolved]
  - Diarrhoea [Recovering/Resolving]
  - Diarrhoea [Recovering/Resolving]
  - Vomiting [Recovering/Resolving]
  - Nasopharyngitis [Recovering/Resolving]
  - Diarrhoea [Not Recovered/Not Resolved]
  - Inappropriate schedule of product administration [Unknown]
  - Inappropriate schedule of product administration [Unknown]
  - Inappropriate schedule of product administration [Unknown]
  - Inappropriate schedule of product administration [Unknown]
  - Inappropriate schedule of product administration [Unknown]
  - Inappropriate schedule of product administration [Unknown]
  - Inappropriate schedule of product administration [Unknown]
  - Inappropriate schedule of product administration [Unknown]

NARRATIVE: CASE EVENT DATE: 20211001
